FAERS Safety Report 4388679-4 (Version None)
Quarter: 2004Q2

REPORT INFORMATION
  Report Type: 
  Country: None (occurrence: None)
  Receive Date: 20040624
  Receipt Date: 20040609
  Transmission Date: 20050107
  Serious: Yes (Hospitalization)
  Sender: FDA-Public Use
  Company Number: A03200401922

PATIENT

DRUGS (1)
  1. ELOXATIN [Suspect]

REACTIONS (1)
  - IDIOPATHIC THROMBOCYTOPENIC PURPURA [None]
